FAERS Safety Report 11089686 (Version 2)
Quarter: 2015Q2

REPORT INFORMATION
  Report Type: Spontaneous
  Country: CN (occurrence: CN)
  Receive Date: 20150505
  Receipt Date: 20150522
  Transmission Date: 20150821
  Serious: Yes (Other)
  Sender: FDA-Public Use
  Company Number: CN-JNJFOC-20150424253

PATIENT
  Age: 57 Year
  Sex: Female

DRUGS (1)
  1. DUROGESIC D-TRANS [Suspect]
     Active Substance: FENTANYL
     Indication: TOOTHACHE
     Route: 062
     Dates: start: 20150427, end: 20150427

REACTIONS (5)
  - Dizziness [Recovered/Resolved]
  - Respiratory depression [Recovered/Resolved]
  - Vomiting [Recovered/Resolved]
  - Self-medication [Unknown]
  - Expired product administered [Unknown]
